FAERS Safety Report 7037295-4 (Version None)
Quarter: 2010Q4

REPORT INFORMATION
  Report Type: 
  Country: None (occurrence: None)
  Receive Date: 20101011
  Receipt Date: 20100928
  Transmission Date: 20110411
  Serious: Yes (Hospitalization, Other)
  Sender: FDA-Public Use
  Company Number: US-ELI_LILLY_AND_COMPANY-US201008007456

PATIENT
  Age: 84 Year
  Sex: Female

DRUGS (2)
  1. FORTEO [Suspect]
     Indication: OSTEOPOROSIS
     Dosage: 20 UG, DAILY (1/D)
  2. ANTIHYPERTENSIVES [Concomitant]

REACTIONS (12)
  - ATRIAL FIBRILLATION [None]
  - BACK PAIN [None]
  - BACTERAEMIA [None]
  - BONE FRAGMENTATION [None]
  - CYST [None]
  - HYPONATRAEMIA [None]
  - NERVE ROOT COMPRESSION [None]
  - OSTEOPOROTIC FRACTURE [None]
  - SPINAL COLUMN STENOSIS [None]
  - STAPHYLOCOCCAL INFECTION [None]
  - URINARY TRACT INFECTION [None]
  - WOUND DEHISCENCE [None]
